FAERS Safety Report 7954120-5 (Version None)
Quarter: 2011Q4

REPORT INFORMATION
  Report Type: 
  Country: None (occurrence: None)
  Receive Date: 20111202
  Receipt Date: 20111123
  Transmission Date: 20120403
  Serious: Yes (Hospitalization)
  Sender: FDA-Public Use
  Company Number: US-JNJFOC-20111005389

PATIENT
  Sex: Male
  Weight: 80 kg

DRUGS (8)
  1. REMICADE [Suspect]
     Indication: CROHN'S DISEASE
     Route: 042
     Dates: start: 20110908
  2. PREDNISONE TAB [Concomitant]
     Indication: PREMEDICATION
     Route: 065
  3. PREDNISONE TAB [Concomitant]
     Indication: CROHN'S DISEASE
     Route: 065
  4. ACETAMINOPHEN [Concomitant]
     Indication: PREMEDICATION
     Route: 065
  5. REMICADE [Suspect]
     Route: 042
     Dates: start: 20040910, end: 20050509
  6. SOLU-CORTEF [Concomitant]
     Indication: PREMEDICATION
     Route: 065
  7. BENADRYL [Concomitant]
     Indication: PREMEDICATION
     Route: 065
  8. PENTASA [Concomitant]
     Indication: CROHN'S DISEASE
     Route: 065

REACTIONS (1)
  - ADVERSE EVENT [None]
